FAERS Safety Report 11936963 (Version 1)
Quarter: 2016Q1

REPORT INFORMATION
  Report Type: Spontaneous
  Country: US (occurrence: US)
  Receive Date: 20160121
  Receipt Date: 20160121
  Transmission Date: 20160526
  Serious: Yes (Death)
  Sender: FDA-Public Use
  Company Number: US-BAYER-2016-010481

PATIENT
  Age: 82 Year
  Sex: Male

DRUGS (1)
  1. BAYER GENUINE ASPIRIN [Suspect]
     Active Substance: ASPIRIN
     Dosage: UNK

REACTIONS (4)
  - Therapeutic response unexpected [None]
  - Product use issue [None]
  - Product use issue [None]
  - Myocardial infarction [Fatal]

NARRATIVE: CASE EVENT DATE: 1970
